FAERS Safety Report 15350442 (Version 1)
Quarter: 2018Q3

REPORT INFORMATION
  Report Type: Spontaneous
  Country: US (occurrence: US)
  Receive Date: 20180905
  Receipt Date: 20180905
  Transmission Date: 20181010
  Serious: No
  Sender: FDA-Public Use
  Company Number: US-009507513-1808USA004458

PATIENT
  Age: 40 Year
  Sex: Female

DRUGS (4)
  1. METHIMAZOLE. [Concomitant]
     Active Substance: METHIMAZOLE
     Indication: THYROID DISORDER
     Dosage: 10 MG (2 TABLETS), QD
     Route: 048
     Dates: start: 20180117
  2. SERTRALINE HYDROCHLORIDE. [Concomitant]
     Active Substance: SERTRALINE HYDROCHLORIDE
     Indication: BIPOLAR I DISORDER
     Dosage: 50 MG (1 TABLET), QD
     Route: 048
     Dates: start: 20180128, end: 20180228
  3. BUTALBITAL COMPOUND [Concomitant]
     Active Substance: ASPIRIN\BUTALBITAL\CAFFEINE
     Indication: HEADACHE
     Dosage: TOTAL DAILY DOSAGE: 4 TABS, DOSE: 325?50?40 (UNIT NOT PROVIDED)
     Route: 048
     Dates: start: 20171226
  4. PROVENTIL [Suspect]
     Active Substance: ALBUTEROL
     Indication: WHEEZING
     Dosage: 108 MICROGRAM/ACTUATION, Q6H (PRN ? AS NEEDED)
     Route: 055
     Dates: start: 20171226

REACTIONS (3)
  - No adverse event [Unknown]
  - Product container issue [Unknown]
  - Poor quality device used [Unknown]

NARRATIVE: CASE EVENT DATE: 20180808
